FAERS Safety Report 8027975-6 (Version None)
Quarter: 2012Q1

REPORT INFORMATION
  Report Type: 
  Country: None (occurrence: None)
  Receive Date: 20120106
  Receipt Date: 20111228
  Transmission Date: 20120608
  Serious: Yes (Other)
  Sender: FDA-Public Use
  Company Number: JP-ELI_LILLY_AND_COMPANY-JP201201001082

PATIENT
  Sex: Female

DRUGS (1)
  1. FORTEO [Suspect]
     Dosage: UNK
     Route: 058
     Dates: start: 20101222

REACTIONS (6)
  - SUICIDAL IDEATION [None]
  - VISUAL ACUITY REDUCED [None]
  - HYPOAESTHESIA [None]
  - HEADACHE [None]
  - AGEUSIA [None]
  - ORAL DISCOMFORT [None]
